FAERS Safety Report 11381367 (Version 3)
Quarter: 2015Q4

REPORT INFORMATION
  Report Type: Spontaneous
  Country: FR (occurrence: FR)
  Receive Date: 20150814
  Receipt Date: 20151014
  Transmission Date: 20160304
  Serious: Yes (Hospitalization)
  Sender: FDA-Public Use
  Company Number: FR-UCBSA-2015025550

PATIENT
  Age: 30 Year
  Sex: Male

DRUGS (4)
  1. KEPPRA [Suspect]
     Active Substance: LEVETIRACETAM
     Indication: EPILEPSY
     Dosage: 2 DF, ONCE DAILY (QD)
     Route: 048
     Dates: start: 20140915
  2. TEGRETOL [Suspect]
     Active Substance: CARBAMAZEPINE
     Indication: TEMPORAL LOBE EPILEPSY
     Dosage: 0.5 DF, ONCE DAILY (QD)
     Route: 048
     Dates: start: 20150710, end: 201507
  3. IBUPROFEN. [Concomitant]
     Active Substance: IBUPROFEN
     Indication: PYREXIA
     Dosage: UNK
     Dates: start: 201507
  4. TEGRETOL [Suspect]
     Active Substance: CARBAMAZEPINE
     Dosage: 0.5 DF, 2X/DAY (BID)
     Route: 048
     Dates: start: 201507, end: 20150724

REACTIONS (4)
  - Thrombocytopenic purpura [Recovering/Resolving]
  - Leukopenia [Recovered/Resolved]
  - Thrombocytopenia [Recovering/Resolving]
  - Pyrexia [Unknown]

NARRATIVE: CASE EVENT DATE: 20150722
